FAERS Safety Report 5680712-2 (Version None)
Quarter: 2008Q1

REPORT INFORMATION
  Report Type: 
  Country: None (occurrence: None)
  Receive Date: 20080326
  Receipt Date: 20080311
  Transmission Date: 20080703
  Serious: Yes (Life-Threatening, Other)
  Sender: FDA-Public Use
  Company Number: DE-GENENTECH-257930

PATIENT

DRUGS (1)
  1. AVASTIN [Suspect]
     Indication: DRUG USE FOR UNKNOWN INDICATION
     Dosage: UNK, UNK
     Route: 031
     Dates: start: 20070619, end: 20070619

REACTIONS (3)
  - ANAPHYLACTIC SHOCK [None]
  - CONVULSION [None]
  - RESPIRATORY ARREST [None]
